FAERS Safety Report 26186040 (Version 1)
Quarter: 2025Q4

REPORT INFORMATION
  Report Type: Spontaneous
  Country: US (occurrence: None)
  Receive Date: 20251221
  Receipt Date: 20251221
  Transmission Date: 20260119
  Serious: No
  Sender: FDA-CTU
  Company Number: None

PATIENT
  Age: 35 Year
  Sex: Female
  Weight: 63 kg

DRUGS (2)
  1. AMOXICILLIN AND CLAVULANATE POTASSIUM [Suspect]
     Active Substance: AMOXICILLIN\CLAVULANATE POTASSIUM
     Indication: Pharyngitis streptococcal
     Dosage: 20 TABLET(AS) EVERY 12 HOURS ORAL
     Route: 048
     Dates: start: 20251220, end: 20251220
  2. PROBIOTICS NOS [Concomitant]
     Active Substance: PROBIOTICS NOS

REACTIONS (4)
  - Nausea [None]
  - Abdominal pain [None]
  - Diarrhoea [None]
  - Hypotension [None]

NARRATIVE: CASE EVENT DATE: 20251220
